FAERS Safety Report 5208963-1 (Version None)
Quarter: 2007Q1

REPORT INFORMATION
  Report Type: 
  Country: None (occurrence: None)
  Receive Date: 20070116
  Receipt Date: 20060124
  Transmission Date: 20070707
  Serious: Yes (Death, Hospitalization, Other)
  Sender: FDA-Public Use
  Company Number: GB-AVENTIS-200514676EU

PATIENT
  Age: 85 Year
  Sex: Male

DRUGS (1)
  1. RILUTEK [Suspect]
     Indication: MOTOR NEURONE DISEASE

REACTIONS (3)
  - CHOKING [None]
  - DISEASE PROGRESSION [None]
  - DYSPHAGIA [None]
